FAERS Safety Report 6240554-6 (Version None)
Quarter: 2009Q2

REPORT INFORMATION
  Report Type: 
  Country: None (occurrence: None)
  Receive Date: 20090623
  Receipt Date: 20080919
  Transmission Date: 20091009
  Serious: No
  Sender: FDA-Public Use
  Company Number: US-ASTRAZENECA-2008UW19610

PATIENT
  Sex: Female

DRUGS (8)
  1. PULMICORT FLEXHALER [Suspect]
     Indication: ASTHMA
     Dosage: 180 MCG 120 DOSES, 1 PUFF TWICE DAILY
     Route: 055
     Dates: start: 20080501
  2. ARIMIDEX [Concomitant]
     Route: 048
     Dates: start: 20040901
  3. ASPIRIN [Concomitant]
  4. LEVOXYL [Concomitant]
  5. SIMVASTATIN [Concomitant]
  6. BENICAR [Concomitant]
  7. SINGULAIR [Concomitant]
  8. COMBIVENT [Concomitant]

REACTIONS (2)
  - INTRAOCULAR PRESSURE INCREASED [None]
  - VISION BLURRED [None]
